FAERS Safety Report 19728811 (Version 2)
Quarter: 2021Q3

REPORT INFORMATION
  Report Type: Spontaneous
  Country: US (occurrence: US)
  Receive Date: 20210820
  Receipt Date: 20210907
  Transmission Date: 20211014
  Serious: No
  Sender: FDA-Public Use
  Company Number: US-AIMMUNE THERAPEUTICS, INC.-2021AIMT00402

PATIENT

DRUGS (1)
  1. PALFORZIA [Suspect]
     Active Substance: PEANUT
     Indication: FOOD ALLERGY
     Dosage: 12 MG, 1X/DAY, LAST DOSE PRIOR EVENT ONSET
     Route: 048
     Dates: start: 20210525, end: 20210525

REACTIONS (2)
  - Expired product administered [Unknown]
  - Pruritus [Unknown]

NARRATIVE: CASE EVENT DATE: 20210625
